FAERS Safety Report 25181323 (Version 2)
Quarter: 2025Q4

REPORT INFORMATION
  Report Type: Spontaneous
  Country: US (occurrence: US)
  Receive Date: 20250410
  Receipt Date: 20251007
  Transmission Date: 20260117
  Serious: Yes (Other)
  Sender: NOVO NORDISK
  Company Number: US-NOVOPROD-1405560

PATIENT
  Age: 48 Year
  Sex: Female
  Weight: 136.05 kg

DRUGS (29)
  1. OZEMPIC [Suspect]
     Active Substance: SEMAGLUTIDE
     Dosage: 0.5 MG, (EVERY 3 WEEKS)
     Dates: start: 20230609, end: 20230911
  2. OZEMPIC [Suspect]
     Active Substance: SEMAGLUTIDE
     Indication: Obesity
     Dosage: 0.5 MG, BIW
     Dates: start: 20230512, end: 20230609
  3. OZEMPIC [Suspect]
     Active Substance: SEMAGLUTIDE
     Indication: Type 2 diabetes mellitus
     Dosage: 0.5 MG, QW
     Dates: start: 20200929, end: 20230512
  4. METFORMIN [Concomitant]
     Active Substance: METFORMIN HYDROCHLORIDE
     Indication: Type 2 diabetes mellitus
     Dosage: UNK
     Dates: start: 20170511, end: 20230623
  5. FARXIGA [Concomitant]
     Active Substance: DAPAGLIFLOZIN PROPANEDIOL
     Indication: Type 2 diabetes mellitus
     Dosage: UNK
     Dates: start: 20210301
  6. GLIPIZIDE [Concomitant]
     Active Substance: GLIPIZIDE
     Indication: Type 2 diabetes mellitus
     Dosage: UNK
     Dates: start: 20181120, end: 20220510
  7. ACETAMINOPHEN\HYDROCODONE [Concomitant]
     Active Substance: ACETAMINOPHEN\HYDROCODONE
     Indication: Pain
     Dosage: UNK
     Dates: start: 20220702
  8. LORATADINE [Concomitant]
     Active Substance: LORATADINE
     Indication: Hypersensitivity
     Dosage: UNK
     Dates: start: 20220524
  9. LOSARTAN POTASSIUM [Concomitant]
     Active Substance: LOSARTAN POTASSIUM
     Indication: Product used for unknown indication
     Dosage: UNK
     Dates: start: 20221018, end: 20221201
  10. HYDRALAZINE HCL [Concomitant]
     Active Substance: HYDRALAZINE HYDROCHLORIDE
     Indication: Hypertension
     Dosage: UNK
     Dates: start: 20220510
  11. DIVALPROEX SODIUM [Concomitant]
     Active Substance: DIVALPROEX SODIUM
     Indication: Bipolar disorder
     Dosage: UNK
     Dates: start: 20220524
  12. POTASSIUM CHLORIDE [Concomitant]
     Active Substance: POTASSIUM CHLORIDE
     Indication: Blood potassium increased
     Dosage: UNK
     Dates: start: 20220811
  13. METOPROLOL [Concomitant]
     Active Substance: METOPROLOL
     Indication: Hypertension
     Dosage: UNK
     Dates: start: 20220616
  14. TRAZODONE [Concomitant]
     Active Substance: TRAZODONE HYDROCHLORIDE
     Indication: Bipolar disorder
     Dosage: UNK
     Dates: start: 20220621
  15. GABAPENTIN [Concomitant]
     Active Substance: GABAPENTIN
     Indication: Neuralgia
     Dosage: UNK
     Dates: start: 20220605
  16. FAMOTIDINE [Concomitant]
     Active Substance: FAMOTIDINE
     Indication: Product used for unknown indication
     Dosage: UNK
     Dates: start: 20230609
  17. QUETIAPINE FUMARATE [Concomitant]
     Active Substance: QUETIAPINE FUMARATE
     Indication: Bipolar disorder
     Dosage: UNK
     Dates: start: 20220524, end: 20241001
  18. VRAYLAR [Concomitant]
     Active Substance: CARIPRAZINE
     Indication: Bipolar disorder
     Dosage: UNK
     Dates: start: 20230721, end: 20240101
  19. FOLIC ACID [Concomitant]
     Active Substance: FOLIC ACID
     Indication: Vitamin supplementation
     Dosage: UNK
     Dates: start: 20230127, end: 20231001
  20. RELISTOR [Concomitant]
     Active Substance: METHYLNALTREXONE BROMIDE
     Indication: Constipation
     Dosage: UNK
     Dates: start: 20230107, end: 20230201
  21. BUSPIRONE [Concomitant]
     Active Substance: BUSPIRONE HYDROCHLORIDE
     Indication: Product used for unknown indication
     Dosage: UNK
     Dates: start: 20220621, end: 20230501
  22. TIZANIDINE [Concomitant]
     Active Substance: TIZANIDINE
     Indication: Product used for unknown indication
     Dosage: UNK
     Dates: start: 20220621, end: 20230401
  23. PROCHLORPERAZINE MALEATE [Concomitant]
     Active Substance: PROCHLORPERAZINE MALEATE
     Indication: Bipolar disorder
     Dosage: UNK
     Dates: start: 20220802, end: 20221201
  24. MELOXICAM [Concomitant]
     Active Substance: MELOXICAM
     Indication: Arthralgia
     Dosage: UNK
     Dates: start: 20220713, end: 20221201
  25. DICLOFENAC SODIUM [Concomitant]
     Active Substance: DICLOFENAC SODIUM
     Indication: Product used for unknown indication
     Dosage: UNK
     Dates: start: 20220510, end: 20220601
  26. BENADRYL [Concomitant]
     Active Substance: DIPHENHYDRAMINE HYDROCHLORIDE
     Indication: Hypersensitivity
     Dosage: UNK
     Dates: start: 20100101
  27. METHYLPREDNISOLONE [Concomitant]
     Active Substance: METHYLPREDNISOLONE
     Indication: Hypersensitivity
     Dosage: UNK
     Dates: start: 20221108, end: 20240901
  28. TRULICITY [Concomitant]
     Active Substance: DULAGLUTIDE
     Indication: Obesity
     Dosage: 1.50 MG, QW
     Dates: start: 20181120, end: 20200929
  29. TRULICITY [Concomitant]
     Active Substance: DULAGLUTIDE
     Indication: Type 2 diabetes mellitus
     Dosage: 0.75 MG, QW
     Dates: start: 20180927, end: 20181120

REACTIONS (2)
  - Impaired gastric emptying [Not Recovered/Not Resolved]
  - Off label use [Unknown]

NARRATIVE: CASE EVENT DATE: 20200901
